FAERS Safety Report 5880520-3 (Version None)
Quarter: 2008Q3

REPORT INFORMATION
  Report Type: 
  Country: None (occurrence: None)
  Receive Date: 20080912
  Receipt Date: 20080902
  Transmission Date: 20090109
  Serious: Yes (Hospitalization)
  Sender: FDA-Public Use
  Company Number: FI-ELI_LILLY_AND_COMPANY-FI200809000258

PATIENT
  Age: 66 Year
  Sex: Female

DRUGS (4)
  1. ZYPREXA [Suspect]
     Indication: PSYCHOTIC DISORDER
     Dosage: 10 MG, UNK
     Route: 048
     Dates: start: 20071212, end: 20080205
  2. IDEOS [Concomitant]
     Indication: OSTEOPOROSIS
     Dosage: 500 MG, 2/D
     Route: 048
  3. IDEOS [Concomitant]
     Dosage: 400 IU, 2/D
     Route: 048
  4. DIAPAM [Concomitant]
     Indication: ANXIETY
     Dosage: 5 MG, UNK
     Route: 048
     Dates: start: 20071212

REACTIONS (1)
  - ERYSIPELAS [None]
